FAERS Safety Report 8190777-4 (Version None)
Quarter: 2012Q1

REPORT INFORMATION
  Report Type: 
  Country: None (occurrence: None)
  Receive Date: 20120307
  Receipt Date: 20120223
  Transmission Date: 20120608
  Serious: Yes (Hospitalization, Other)
  Sender: FDA-Public Use
  Company Number: JP-AMGEN-JPNSP2011056227

PATIENT
  Age: 44 Year
  Sex: Male

DRUGS (11)
  1. FOLIC ACID [Concomitant]
     Dosage: 5 MG, DAILY
  2. FOLIC ACID [Concomitant]
     Indication: PROPHYLAXIS
     Dosage: 5 MG DAILY
     Route: 048
     Dates: start: 20070126, end: 20111025
  3. PROTECADIN [Concomitant]
     Indication: RHEUMATOID ARTHRITIS
     Dosage: 20 MG DAILY
     Route: 048
     Dates: start: 20070126
  4. ENBREL [Suspect]
     Indication: RHEUMATOID ARTHRITIS
     Dosage: 50 MG, WEEKLY
     Route: 058
     Dates: start: 20101117, end: 20111025
  5. METHOTREXATE SODIUM [Concomitant]
     Indication: RHEUMATOID ARTHRITIS
     Dosage: 10 MG DAILY
     Route: 048
     Dates: start: 20060101, end: 20111025
  6. PROTECADIN [Concomitant]
     Dosage: 20 MG, DAILY
  7. ALENDRONATE SODIUM [Concomitant]
     Indication: RHEUMATOID ARTHRITIS
     Dosage: 35 MG DAILY
     Route: 048
     Dates: start: 20091118
  8. PREDNISOLONE [Concomitant]
     Indication: RHEUMATOID ARTHRITIS
     Dosage: 5 MG, QD
     Route: 048
     Dates: start: 20070126
  9. ALENDRONATE SODIUM [Concomitant]
     Dosage: 35 MG, DAILY
  10. PREDNISOLONE [Concomitant]
     Dosage: 5 MG, DAILY
     Route: 048
     Dates: start: 20070126
  11. ETODOLAC [Concomitant]
     Indication: RHEUMATOID ARTHRITIS
     Dosage: 400 MG, DAILY
     Route: 048
     Dates: start: 20070126

REACTIONS (3)
  - ATYPICAL MYCOBACTERIAL INFECTION [None]
  - MYCOBACTERIUM AVIUM COMPLEX INFECTION [None]
  - RHEUMATOID ARTHRITIS [None]
